FAERS Safety Report 12796366 (Version 1)
Quarter: 2016Q3

REPORT INFORMATION
  Report Type: Spontaneous
  Country: US (occurrence: US)
  Receive Date: 20160929
  Receipt Date: 20160929
  Transmission Date: 20161109
  Serious: No
  Sender: FDA-Public Use
  Company Number: US-INCYTE CORPORATION-2016IN002420

PATIENT
  Sex: Male

DRUGS (1)
  1. JAKAFI [Suspect]
     Active Substance: RUXOLITINIB
     Dosage: 15 MG, 2 TABS IN THE AM AND ONE IN THE PM
     Route: 048
     Dates: start: 20160125

REACTIONS (2)
  - Bowel movement irregularity [Recovered/Resolved]
  - Weight increased [Recovered/Resolved]
